FAERS Safety Report 6772259-7 (Version None)
Quarter: 2010Q2

REPORT INFORMATION
  Report Type: 
  Country: None (occurrence: None)
  Receive Date: 20100616
  Receipt Date: 20091201
  Transmission Date: 20101027
  Serious: No
  Sender: FDA-Public Use
  Company Number: US-ASTRAZENECA-2009SE29997

PATIENT
  Age: 41 Year
  Sex: Female
  Weight: 81.6 kg

DRUGS (5)
  1. PULMICORT FLEXHALER [Suspect]
     Indication: ASTHMA
     Route: 055
     Dates: start: 20070101
  2. PULMICORT FLEXHALER [Suspect]
     Route: 055
  3. MANY VITAMINS [Concomitant]
  4. HYZAAR [Concomitant]
     Indication: BLOOD PRESSURE
  5. XOPENEX [Concomitant]
     Indication: DYSPNOEA

REACTIONS (4)
  - AGITATION [None]
  - CHEST DISCOMFORT [None]
  - NERVOUSNESS [None]
  - RESTLESSNESS [None]
